FAERS Safety Report 5026440-8 (Version None)
Quarter: 2006Q2

REPORT INFORMATION
  Report Type: 
  Country: None (occurrence: None)
  Receive Date: 20060613
  Receipt Date: 20060613
  Transmission Date: 20061013
  Serious: No
  Sender: FDA-Public Use
  Company Number: None

PATIENT
  Age: 21 Year
  Sex: Male

DRUGS (1)
  1. LISTERINE PREBRUSH RINSE [Suspect]

REACTIONS (2)
  - CHAPPED LIPS [None]
  - ORAL MUCOSAL EXFOLIATION [None]
